FAERS Safety Report 9385001 (Version 1)
Quarter: 2013Q3

REPORT INFORMATION
  Report Type: Spontaneous
  Country: US (occurrence: US)
  Receive Date: 20130705
  Receipt Date: 20130705
  Transmission Date: 20140515
  Serious: No
  Sender: FDA-Public Use
  Company Number: US-GLAXOSMITHKLINE-A1022864A

PATIENT
  Age: 58 Year
  Sex: Male

DRUGS (10)
  1. BENLYSTA [Suspect]
     Indication: SYSTEMIC LUPUS ERYTHEMATOSUS
     Route: 042
     Dates: start: 20130415
  2. LEFLUNOMIDE [Concomitant]
  3. HYDROXYCHLOROQUINE SULFATE [Concomitant]
  4. PREDNISONE [Concomitant]
  5. TAMSULOSIN [Concomitant]
  6. LISINOPRIL [Concomitant]
  7. VENLAFAXINE [Concomitant]
  8. NEXIUM [Concomitant]
  9. ASPIRIN [Concomitant]
  10. VITAMIN D [Concomitant]

REACTIONS (3)
  - Burning sensation [Unknown]
  - Fatigue [Unknown]
  - Alopecia [Unknown]
